FAERS Safety Report 5866760-8 (Version None)
Quarter: 2008Q3

REPORT INFORMATION
  Report Type: 
  Country: None (occurrence: None)
  Receive Date: 20080828
  Receipt Date: 20080828
  Transmission Date: 20090109
  Serious: No
  Sender: FDA-Public Use
  Company Number: None

PATIENT
  Age: 10 Year
  Sex: Male
  Weight: 45.3597 kg

DRUGS (2)
  1. LEVAQUIN [Suspect]
     Indication: EAR INFECTION
     Dosage: 750MG. Q D PO
     Route: 048
     Dates: start: 20080827, end: 20080827
  2. LEVAQUIN [Suspect]
     Indication: SINUSITIS
     Dosage: 750MG. Q D PO
     Route: 048
     Dates: start: 20080827, end: 20080827

REACTIONS (5)
  - CONVERSION DISORDER [None]
  - DIZZINESS [None]
  - FEAR [None]
  - HALLUCINATION [None]
  - NIGHTMARE [None]
